FAERS Safety Report 26203059 (Version 1)
Quarter: 2025Q4

REPORT INFORMATION
  Report Type: Spontaneous
  Country: IN (occurrence: IN)
  Receive Date: 20251226
  Receipt Date: 20251226
  Transmission Date: 20260118
  Serious: Yes (Hospitalization, Other)
  Sender: TORRENT PHARMA INC.
  Company Number: IN-TORRENT-00004165

PATIENT
  Age: 91 Year
  Sex: Male

DRUGS (3)
  1. LITHIUM [Suspect]
     Active Substance: LITHIUM
     Indication: Bipolar disorder
     Route: 065
  2. INDAPAMIDE [Suspect]
     Active Substance: INDAPAMIDE
     Indication: Blood pressure measurement
     Route: 065
  3. TELMISARTAN [Suspect]
     Active Substance: TELMISARTAN
     Indication: Blood pressure measurement
     Route: 065

REACTIONS (7)
  - Hyperparathyroidism [Unknown]
  - Vascular parkinsonism [Recovered/Resolved]
  - Myoclonus [Recovered/Resolved]
  - Agitation [Unknown]
  - Insomnia [Unknown]
  - Hypernatraemia [Unknown]
  - Toxicity to various agents [Unknown]
